FAERS Safety Report 6655465-1 (Version None)
Quarter: 2010Q1

REPORT INFORMATION
  Report Type: 
  Country: None (occurrence: None)
  Receive Date: 20100329
  Receipt Date: 20100319
  Transmission Date: 20100710
  Serious: Yes (Death)
  Sender: FDA-Public Use
  Company Number: US-PFIZER INC-2010036669

PATIENT
  Sex: Male
  Weight: 54.422 kg

DRUGS (3)
  1. NEURONTIN [Suspect]
     Indication: PAIN
     Dosage: 300 MG, 1X/DAY
     Route: 048
  2. NORVASC [Suspect]
     Indication: CARDIAC DISORDER
     Dosage: 5 MG, 1X/DAY
     Route: 048
  3. ALDACTONE [Suspect]
     Indication: RENAL DISORDER
     Dosage: 25 MG, 1X/DAY
     Route: 048

REACTIONS (1)
  - DEATH [None]
